FAERS Safety Report 7594654-9 (Version None)
Quarter: 2011Q3

REPORT INFORMATION
  Report Type: 
  Country: None (occurrence: None)
  Receive Date: 20110707
  Receipt Date: 20110629
  Transmission Date: 20111222
  Serious: Yes (Death, Other)
  Sender: FDA-Public Use
  Company Number: US-GENZYME-MOZO-1000535

PATIENT
  Age: 67 Year
  Sex: Male

DRUGS (4)
  1. CLOFARABINE [Suspect]
     Indication: ACUTE MYELOID LEUKAEMIA
     Dosage: 30 MG/M2, QD
     Route: 065
  2. MOZOBIL [Suspect]
     Indication: HAEMATOPOIETIC STEM CELL MOBILISATION
     Dosage: 240 MCG/KG, QD
     Route: 058
  3. MOZOBIL [Suspect]
     Indication: ACUTE MYELOID LEUKAEMIA
  4. CLOFARABINE [Suspect]
     Dosage: 20 MG/M2, QD
     Route: 065

REACTIONS (4)
  - LUNG INFECTION PSEUDOMONAL [None]
  - DEATH [None]
  - ASPERGILLOSIS [None]
  - FUNGAL INFECTION [None]
